FAERS Safety Report 5308291-X (Version None)
Quarter: 2007Q2

REPORT INFORMATION
  Report Type: 
  Country: None (occurrence: None)
  Receive Date: 20070423
  Receipt Date: 20070423
  Transmission Date: 20071010
  Serious: Yes (Life-Threatening, Hospitalization, Disabling)
  Sender: FDA-Public Use
  Company Number: None

PATIENT
  Age: 5 Day
  Sex: Male
  Weight: 0.6 kg

DRUGS (1)
  1. IBUPROFEN [Suspect]
     Indication: PATENT DUCTUS ARTERIOSUS
     Dosage: 10 MG/KG  ONCE   IV
     Route: 042
     Dates: start: 20070323, end: 20070324

REACTIONS (2)
  - GASTRIC PERFORATION [None]
  - PERSISTENT FOETAL CIRCULATION [None]
